FAERS Safety Report 17291245 (Version 1)
Quarter: 2020Q1

REPORT INFORMATION
  Report Type: Spontaneous
  Country: DE (occurrence: DE)
  Receive Date: 20200121
  Receipt Date: 20200121
  Transmission Date: 20200409
  Serious: Yes (Other)
  Sender: FDA-Public Use
  Company Number: DE-TEVA-2020-DE-1169571

PATIENT
  Age: 71 Year
  Sex: Male

DRUGS (1)
  1. METOPROLOL ABZ 100 MG TABLETTEN [Suspect]
     Active Substance: METOPROLOL TARTRATE
     Route: 048
     Dates: start: 202001, end: 202001

REACTIONS (4)
  - Suspected product quality issue [Unknown]
  - Blood glucose increased [Unknown]
  - Blood pressure increased [Recovered/Resolved]
  - Product substitution issue [Unknown]

NARRATIVE: CASE EVENT DATE: 202001
